FAERS Safety Report 9551680 (Version 1)
Quarter: 2013Q3

REPORT INFORMATION
  Report Type: Spontaneous
  Country: US (occurrence: None)
  Receive Date: 20130724
  Receipt Date: 20130724
  Transmission Date: 20140515
  Serious: Yes (Other)
  Sender: FDA-Public Use
  Company Number: PHEH2012US010470

PATIENT
  Age: 85 Year
  Sex: Male
  Weight: 69.4 kg

DRUGS (20)
  1. GLEEVEC [Suspect]
     Route: 048
  2. LISINOPRIL (LISINOPRIL) [Concomitant]
  3. ASPIRIN BUFFERED (ACETYLSALICYLIC ACID) [Concomitant]
  4. CRESTOR (ROSUVASTATIN CALCIUM) [Concomitant]
  5. PLAVIX (CLOPIDOGREL SULFATE) [Concomitant]
  6. METOPROLOL (METOPROLOL) [Concomitant]
  7. POTASSIUM (POTASSIUM) [Concomitant]
  8. HYDROCHLOROTHIAZIDE W/TRIAMTERENE (HYDROCHLOROTHIAZIDE, TRIAMTERENE) [Concomitant]
  9. PRILOSEC [Concomitant]
  10. TRAVATAN (TRAVOPROST) [Concomitant]
  11. MEGACE (MEGESTROL ACETATE) [Concomitant]
  12. FERROUS SULFATE (FERROUS SULFATE) [Concomitant]
  13. OMEPRAZOLE (OMEPRAZOLE) [Concomitant]
  14. COD-LIVER OIL CAPSULES (COD-LIVER OIL) [Concomitant]
  15. CLARITIN (LORATADINE) [Concomitant]
  16. IMODIUM ADVANCED (LOPERAMIDE HYDROCHLORIDE, SIMETICONE) [Concomitant]
  17. VITAMIN C [Concomitant]
  18. VITAMIN B12 (CYANOCOBALAMIN) [Concomitant]
  19. ARGININE (ARGININE) [Concomitant]
  20. ENSURE (AMINOACIDS NOS, MINERALS NOS, VITAMINS NOS) [Concomitant]

REACTIONS (4)
  - Diarrhoea [None]
  - Anaemia [None]
  - Nausea [None]
  - Decreased appetite [None]
